FAERS Safety Report 11060083 (Version 1)
Quarter: 2015Q2

REPORT INFORMATION
  Report Type: Spontaneous
  Country: IT (occurrence: IT)
  Receive Date: 20150423
  Receipt Date: 20150423
  Transmission Date: 20150821
  Serious: Yes (Hospitalization)
  Sender: FDA-Public Use
  Company Number: IT-BAYER-2015-135837

PATIENT
  Age: 66 Year
  Sex: Male

DRUGS (3)
  1. PROVISACOR [Concomitant]
     Active Substance: ROSUVASTATIN
  2. LOBIVON [Concomitant]
     Active Substance: NEBIVOLOL HYDROCHLORIDE
  3. CARDIOASPIRIN [Suspect]
     Active Substance: ASPIRIN
     Dosage: 100 MG,DAILY DOSE
     Route: 048
     Dates: start: 20050101, end: 20150412

REACTIONS (5)
  - Syncope [Recovering/Resolving]
  - Head injury [Recovering/Resolving]
  - Anaemia [Recovering/Resolving]
  - Gastric ulcer haemorrhage [Recovering/Resolving]
  - Cerebral microhaemorrhage [Recovering/Resolving]

NARRATIVE: CASE EVENT DATE: 20150412
